FAERS Safety Report 9386263 (Version 1)
Quarter: 2013Q3

REPORT INFORMATION
  Report Type: Spontaneous
  Country: SE (occurrence: SE)
  Receive Date: 20130708
  Receipt Date: 20130708
  Transmission Date: 20140515
  Serious: Yes (Hospitalization)
  Sender: FDA-Public Use
  Company Number: SE-MERCK-1307SWE002590

PATIENT
  Age: 29 Year
  Sex: Male

DRUGS (1)
  1. MIRTAZAPINE [Suspect]
     Dosage: UNK
     Dates: start: 201201

REACTIONS (4)
  - Fatigue [Recovered/Resolved]
  - Pain [Recovered/Resolved]
  - Hypoaesthesia [Recovered/Resolved]
  - Hyponatraemia [Recovered/Resolved]
